FAERS Safety Report 8131626-X (Version None)
Quarter: 2012Q1

REPORT INFORMATION
  Report Type: 
  Country: None (occurrence: None)
  Receive Date: 20120208
  Receipt Date: 20120126
  Transmission Date: 20120608
  Serious: Yes (Hospitalization, Other)
  Sender: FDA-Public Use
  Company Number: 2012MA001207

PATIENT
  Sex: Female

DRUGS (9)
  1. DIGOXIN [Suspect]
     Indication: PRODUCT USED FOR UNKNOWN INDICATION
     Dosage: 0.25 MG;QD;PO
     Route: 048
     Dates: start: 20041118, end: 20081112
  2. SYNTHROID [Concomitant]
  3. POTASSIUM CHLORIDE [Concomitant]
  4. NITROGLYCERIN [Concomitant]
  5. LASIX [Concomitant]
  6. COREG [Concomitant]
  7. ALDACTONE [Concomitant]
  8. WELLBUTRIN [Concomitant]
  9. ASPIRIN [Concomitant]

REACTIONS (33)
  - HYPOKALAEMIA [None]
  - PAIN IN EXTREMITY [None]
  - GALLOP RHYTHM PRESENT [None]
  - ARRHYTHMIA [None]
  - VENTRICULAR TACHYCARDIA [None]
  - HYPOTHYROIDISM [None]
  - EPIGASTRIC DISCOMFORT [None]
  - ELECTROCARDIOGRAM POOR R-WAVE PROGRESSION [None]
  - VENTRICULAR EXTRASYSTOLES [None]
  - BUNDLE BRANCH BLOCK LEFT [None]
  - ANGINA PECTORIS [None]
  - PALPITATIONS [None]
  - HYPOKALAEMIC SYNDROME [None]
  - ATRIOVENTRICULAR BLOCK FIRST DEGREE [None]
  - CARDIAC ANEURYSM [None]
  - AORTIC VALVE INCOMPETENCE [None]
  - CHEST DISCOMFORT [None]
  - SUTURE RUPTURE [None]
  - CARDIOMEGALY [None]
  - ISCHAEMIC CARDIOMYOPATHY [None]
  - MUSCULOSKELETAL CHEST PAIN [None]
  - BLOOD PRESSURE DECREASED [None]
  - CORONARY ARTERY DISEASE [None]
  - HYPERHIDROSIS [None]
  - QRS AXIS ABNORMAL [None]
  - WEIGHT INCREASED [None]
  - DIZZINESS [None]
  - DILATATION VENTRICULAR [None]
  - LEFT VENTRICULAR DYSFUNCTION [None]
  - NAUSEA [None]
  - MITRAL VALVE INCOMPETENCE [None]
  - SINUSITIS [None]
  - SUPRAVENTRICULAR EXTRASYSTOLES [None]
